FAERS Safety Report 7756979-3 (Version None)
Quarter: 2011Q3

REPORT INFORMATION
  Report Type: 
  Country: None (occurrence: None)
  Receive Date: 20110916
  Receipt Date: 20110916
  Transmission Date: 20111222
  Serious: Yes (Hospitalization)
  Sender: FDA-Public Use
  Company Number: None

PATIENT
  Age: 5 Year
  Sex: Female
  Weight: 19.2 kg

DRUGS (5)
  1. ORAPRED [Concomitant]
  2. RILONACEPT [Suspect]
     Indication: JUVENILE ARTHRITIS
     Dosage: 38.72 MG
     Route: 058
     Dates: start: 20090826, end: 20100505
  3. INDOMETHACIN [Concomitant]
  4. ZANTAC [Concomitant]
  5. NAPROXEN [Concomitant]

REACTIONS (15)
  - HYPERTENSION [None]
  - GINGIVAL HYPERPLASIA [None]
  - RESPIRATORY TRACT INFECTION [None]
  - PYREXIA [None]
  - DILATATION ATRIAL [None]
  - PULMONARY VALVE INCOMPETENCE [None]
  - HIRSUTISM [None]
  - EJECTION FRACTION DECREASED [None]
  - RIGHT VENTRICULAR HYPERTROPHY [None]
  - RASH [None]
  - DRUG EFFECT DECREASED [None]
  - ARTHRALGIA [None]
  - PRODUCTIVE COUGH [None]
  - PERICARDIAL EFFUSION [None]
  - TRICUSPID VALVE INCOMPETENCE [None]
